FAERS Safety Report 7135488-9 (Version None)
Quarter: 2010Q4

REPORT INFORMATION
  Report Type: 
  Country: None (occurrence: None)
  Receive Date: 20101203
  Receipt Date: 20101130
  Transmission Date: 20110411
  Serious: Yes (Other)
  Sender: FDA-Public Use
  Company Number: ES-AMGEN AB-KDC412088

PATIENT
  Sex: Female

DRUGS (4)
  1. DENOSUMAB [Suspect]
     Indication: METASTASES TO BONE
     Dosage: 1.7 ML, UNK
     Route: 058
     Dates: start: 20090811, end: 20091202
  2. AROMASIL [Concomitant]
     Dosage: UNK UNK, UNK
     Route: 042
  3. LYRICA [Concomitant]
     Dosage: UNK UNK, UNK
     Dates: end: 20100101
  4. LORAZEPAM [Concomitant]
     Dosage: UNK UNK, UNK
     Dates: end: 20100101

REACTIONS (1)
  - OSTEONECROSIS OF JAW [None]
